FAERS Safety Report 7444665-9 (Version None)
Quarter: 2011Q2

REPORT INFORMATION
  Report Type: 
  Country: None (occurrence: None)
  Receive Date: 20110429
  Receipt Date: 20110426
  Transmission Date: 20111010
  Serious: No
  Sender: FDA-Public Use
  Company Number: US-PFIZER INC-2011091207

PATIENT
  Sex: Female

DRUGS (12)
  1. SYNTHROID [Suspect]
     Dosage: UNK
     Route: 048
  2. HYDROCODONE [Suspect]
     Dosage: UNK
     Route: 048
  3. ADDERALL 10 [Suspect]
     Dosage: UNK
     Route: 048
  4. PATANOL [Suspect]
     Indication: HYPERSENSITIVITY
     Dosage: UNK
  5. VICODIN [Suspect]
     Dosage: UNK
     Route: 048
  6. HYOSCYAMINE SULFATE [Suspect]
     Dosage: UNK
     Route: 048
  7. NASONEX [Suspect]
     Indication: HYPERSENSITIVITY
     Dosage: UNK
     Route: 045
  8. NEURONTIN [Suspect]
     Dosage: UNK
     Route: 048
  9. MOMETASONE FUROATE [Suspect]
     Indication: HYPERSENSITIVITY
     Dosage: UNK
  10. RITALIN [Suspect]
     Dosage: UNK
     Route: 048
  11. PROVIGIL [Suspect]
     Dosage: UNK
     Route: 048
  12. MULTI-VITAMINS [Suspect]
     Dosage: UNK
     Route: 048

REACTIONS (1)
  - DRUG INEFFECTIVE [None]
